FAERS Safety Report 11109176 (Version 1)
Quarter: 2015Q2

REPORT INFORMATION
  Report Type: Spontaneous
  Country: US (occurrence: None)
  Receive Date: 20150511
  Receipt Date: 20150511
  Transmission Date: 20150821
  Serious: Yes (Other)
  Sender: FDA-Public Use
  Company Number: None

PATIENT
  Age: 64 Year
  Sex: Female
  Weight: 68.04 kg

DRUGS (8)
  1. CALCIUM [Concomitant]
     Active Substance: CALCIUM
  2. OMEPRAZOLE. [Suspect]
     Active Substance: OMEPRAZOLE
     Indication: GASTROOESOPHAGEAL REFLUX DISEASE
     Route: 048
  3. OMEPRAZOLE. [Concomitant]
     Active Substance: OMEPRAZOLE
  4. LOPRESSOR [Concomitant]
     Active Substance: METOPROLOL TARTRATE
  5. LANTUS [Concomitant]
     Active Substance: INSULIN GLARGINE
  6. FISH OIL [Concomitant]
     Active Substance: FISH OIL
  7. VITAMIN D [Concomitant]
     Active Substance: CHOLECALCIFEROL
  8. METFORMIN [Concomitant]
     Active Substance: METFORMIN HYDROCHLORIDE

REACTIONS (3)
  - Product commingling [None]
  - Drug dispensing error [None]
  - Wrong drug administered [None]

NARRATIVE: CASE EVENT DATE: 20150507
